FAERS Safety Report 10089104 (Version 2)
Quarter: 2014Q2

REPORT INFORMATION
  Report Type: Spontaneous
  Country: DE (occurrence: DE)
  Receive Date: 20140421
  Receipt Date: 20140611
  Transmission Date: 20141212
  Serious: Yes (Death, Life-Threatening)
  Sender: FDA-Public Use
  Company Number: DE-BAYER-2014-054620

PATIENT
  Age: 83 Year
  Sex: Male
  Weight: 105 kg

DRUGS (8)
  1. XARELTO [Suspect]
     Indication: ATRIAL FLUTTER
     Dosage: 15 MG, UNK
     Route: 048
     Dates: start: 2013
  2. XARELTO [Suspect]
     Indication: CEREBROVASCULAR ACCIDENT PROPHYLAXIS
  3. ASS [Suspect]
     Indication: CORONARY ARTERY DISEASE
     Dosage: 100 MG, UNK
     Route: 048
     Dates: start: 201208
  4. ASS [Suspect]
     Indication: STENT PLACEMENT
  5. PANTOZOL [Concomitant]
     Indication: PROPHYLAXIS
     Dosage: 20 UNK, UNK
     Route: 048
     Dates: start: 2012
  6. SIMVASTATIN [Concomitant]
     Indication: HYPERCHOLESTEROLAEMIA
     Dosage: 20 UNK, UNK
     Route: 048
     Dates: start: 201208
  7. TORSEMIDE [Concomitant]
     Indication: CARDIAC FAILURE
     Dosage: 10 MG, QD
     Route: 048
     Dates: start: 2012
  8. METOPROLOL [Concomitant]
     Indication: HYPERTENSION
     Dosage: 75 MG, UNK
     Route: 048
     Dates: start: 2012

REACTIONS (2)
  - Gastrointestinal haemorrhage [Fatal]
  - Shock haemorrhagic [Fatal]
